FAERS Safety Report 6867671-1 (Version None)
Quarter: 2010Q3

REPORT INFORMATION
  Report Type: 
  Country: None (occurrence: None)
  Receive Date: 20100722
  Receipt Date: 20100302
  Transmission Date: 20110219
  Serious: No
  Sender: FDA-Public Use
  Company Number: US-BAUSCH-2010BL001205

PATIENT
  Age: 55 Year
  Sex: Female

DRUGS (5)
  1. OPCON-A [Suspect]
     Indication: EYE PRURITUS
     Route: 047
     Dates: start: 20090601, end: 20100227
  2. LOPRESSOR [Concomitant]
     Indication: PALPITATIONS
  3. ASPIRIN [Concomitant]
  4. CELEBREX [Concomitant]
     Indication: ARTHRITIS
  5. MULTIPLE VITAMINS [Concomitant]

REACTIONS (1)
  - VISION BLURRED [None]
